FAERS Safety Report 9138491 (Version 1)
Quarter: 2013Q1

REPORT INFORMATION
  Report Type: Spontaneous
  Country: US (occurrence: US)
  Receive Date: 20130305
  Receipt Date: 20130305
  Transmission Date: 20140127
  Serious: No
  Sender: FDA-Public Use
  Company Number: US-BIOGENIDEC-2013BI019011

PATIENT
  Age: 48 Year
  Sex: Female

DRUGS (4)
  1. TYSABRI [Suspect]
     Indication: MULTIPLE SCLEROSIS
     Route: 042
     Dates: start: 20090609
  2. TDAP [Concomitant]
     Indication: IMMUNISATION
     Route: 030
     Dates: start: 20130201, end: 20130201
  3. MMR [Concomitant]
     Indication: IMMUNISATION
     Route: 030
     Dates: start: 20130206, end: 20130206
  4. VARICELLA VACCINATION [Concomitant]
     Indication: IMMUNISATION
     Route: 030
     Dates: start: 20130206, end: 20130206

REACTIONS (9)
  - Pain [Not Recovered/Not Resolved]
  - Night sweats [Not Recovered/Not Resolved]
  - Tremor [Not Recovered/Not Resolved]
  - Memory impairment [Not Recovered/Not Resolved]
  - Confusional state [Not Recovered/Not Resolved]
  - Insomnia [Not Recovered/Not Resolved]
  - Nausea [Not Recovered/Not Resolved]
  - Asthenia [Not Recovered/Not Resolved]
  - Headache [Not Recovered/Not Resolved]
